FAERS Safety Report 25401174 (Version 1)
Quarter: 2025Q2

REPORT INFORMATION
  Report Type: Spontaneous
  Country: GB (occurrence: GB)
  Receive Date: 20250605
  Receipt Date: 20250605
  Transmission Date: 20250716
  Serious: Yes (Other)
  Sender: ELI LILLY AND COMPANY
  Company Number: None

PATIENT
  Age: 24 Year
  Sex: Female
  Weight: 85 kg

DRUGS (1)
  1. MOUNJARO [Suspect]
     Active Substance: TIRZEPATIDE
     Indication: Weight control
     Route: 065
     Dates: start: 20250207

REACTIONS (6)
  - Heavy menstrual bleeding [Not Recovered/Not Resolved]
  - Dysmenorrhoea [Unknown]
  - Poor quality sleep [Unknown]
  - Pain [Recovering/Resolving]
  - Nausea [Unknown]
  - Fatigue [Unknown]

NARRATIVE: CASE EVENT DATE: 20250429
